FAERS Safety Report 6889178-8 (Version None)
Quarter: 2010Q3

REPORT INFORMATION
  Report Type: 
  Country: None (occurrence: None)
  Receive Date: 20100730
  Receipt Date: 20080116
  Transmission Date: 20110219
  Serious: No
  Sender: FDA-Public Use
  Company Number: US-PFIZER INC-2008005070

PATIENT
  Sex: Female
  Weight: 109.09 kg

DRUGS (4)
  1. LIPITOR [Suspect]
     Indication: BLOOD CHOLESTEROL INCREASED
     Dates: start: 20071205
  2. AMBIEN [Concomitant]
  3. MACRODANTIN [Concomitant]
  4. HERBAL PREPARATION [Concomitant]

REACTIONS (3)
  - BACK PAIN [None]
  - DYSPEPSIA [None]
  - MUSCLE SPASMS [None]
